FAERS Safety Report 10805133 (Version 1)
Quarter: 2015Q1

REPORT INFORMATION
  Report Type: Report from Study
  Country: US (occurrence: US)
  Receive Date: 20150217
  Receipt Date: 20150217
  Transmission Date: 20150721
  Serious: No
  Sender: FDA-Public Use
  Company Number: US-ABBVIE-14K-163-1255012-00

PATIENT
  Sex: Female

DRUGS (8)
  1. LISINOPRIL. [Concomitant]
     Active Substance: LISINOPRIL
     Indication: PRODUCT USED FOR UNKNOWN INDICATION
  2. WATER. [Concomitant]
     Active Substance: WATER
     Indication: RENAL DISORDER
  3. FLOMAX [Concomitant]
     Active Substance: TAMSULOSIN HYDROCHLORIDE
     Indication: OSTEOPOROSIS
  4. HUMIRA [Suspect]
     Active Substance: ADALIMUMAB
     Indication: PSORIASIS
     Dates: start: 20140329
  5. POTASSIUM [Concomitant]
     Active Substance: POTASSIUM
     Indication: MINERAL SUPPLEMENTATION
  6. SALINE [Concomitant]
     Active Substance: SODIUM CHLORIDE
     Indication: PSORIASIS
     Dosage: TWO DROPS TWICE DAILY
  7. FOLIC ACID. [Concomitant]
     Active Substance: FOLIC ACID
     Indication: VITAMIN SUPPLEMENTATION
  8. DOXEPIN [Concomitant]
     Active Substance: DOXEPIN
     Indication: PRURITUS
     Dosage: AT NIGHT

REACTIONS (3)
  - Pruritus generalised [Not Recovered/Not Resolved]
  - Urticaria [Not Recovered/Not Resolved]
  - Skin hypertrophy [Unknown]

NARRATIVE: CASE EVENT DATE: 2014
